FAERS Safety Report 5022531-6 (Version None)
Quarter: 2006Q2

REPORT INFORMATION
  Report Type: 
  Country: None (occurrence: None)
  Receive Date: 20060605
  Receipt Date: 20060530
  Transmission Date: 20061013
  Serious: Yes (Hospitalization)
  Sender: FDA-Public Use
  Company Number: FR-2004-032708

PATIENT
  Age: 51 Year
  Sex: Female
  Weight: 73 kg

DRUGS (2)
  1. MIRENA [Suspect]
     Dosage: 20 MG, CONT, INTRA-UTERINE
     Route: 015
     Dates: start: 19990615
  2. ACETAMINOPHEN [Suspect]
     Indication: HEADACHE
     Dosage: ORAL
     Route: 048

REACTIONS (9)
  - ANTINUCLEAR ANTIBODY POSITIVE [None]
  - CARDIOLIPIN ANTIBODY POSITIVE [None]
  - HAEMATURIA [None]
  - HYPERPLASIA [None]
  - PETECHIAE [None]
  - SPLEEN DISORDER [None]
  - SPONTANEOUS HAEMATOMA [None]
  - THROMBOCYTOPENIA [None]
  - THROMBOCYTOPENIC PURPURA [None]
